FAERS Safety Report 4560030-6 (Version None)
Quarter: 2005Q1

REPORT INFORMATION
  Report Type: 
  Country: None (occurrence: None)
  Receive Date: 20050125
  Receipt Date: 20050113
  Transmission Date: 20050727
  Serious: Yes (Other)
  Sender: FDA-Public Use
  Company Number: US-JNJFOC-20050103407

PATIENT
  Sex: Female
  Weight: 72.58 kg

DRUGS (22)
  1. INFLIXIMAB [Suspect]
     Indication: RHEUMATOID ARTHRITIS
     Route: 042
  2. METHOTREXATE [Concomitant]
  3. LANOXIN [Concomitant]
  4. ASPIRIN [Concomitant]
  5. KLOR-CON [Concomitant]
  6. TEMAZEPAM [Concomitant]
  7. QUINAGLUTE [Concomitant]
  8. SULINDAC [Concomitant]
  9. PREDNISONE [Concomitant]
  10. PROPOXYPHENE [Concomitant]
     Dosage: 2-4 TABLETS DAILY
  11. FOLIC ACID [Concomitant]
  12. CALCIUM GLUCONATE [Concomitant]
  13. ZOCOR [Concomitant]
  14. VITAMIN C [Concomitant]
  15. MULTI-VITAMIN [Concomitant]
  16. MULTI-VITAMIN [Concomitant]
  17. MULTI-VITAMIN [Concomitant]
  18. MULTI-VITAMIN [Concomitant]
  19. MULTI-VITAMIN [Concomitant]
  20. MULTI-VITAMIN [Concomitant]
  21. MULTI-VITAMIN [Concomitant]
  22. MULTI-VITAMIN [Concomitant]

REACTIONS (1)
  - SKIN CANCER [None]
